FAERS Safety Report 6554380-1 (Version None)
Quarter: 2010Q1

REPORT INFORMATION
  Report Type: 
  Country: None (occurrence: None)
  Receive Date: 20100127
  Receipt Date: 20100118
  Transmission Date: 20100710
  Serious: Yes (Other)
  Sender: FDA-Public Use
  Company Number: D0066112A

PATIENT
  Age: 77 Year
  Sex: Female
  Weight: 70 kg

DRUGS (3)
  1. NADROPARIN [Suspect]
     Dosage: .7ML PER DAY
     Route: 058
     Dates: start: 20080711, end: 20080720
  2. FONDAPARINUX SODIUM [Suspect]
     Dosage: 7.5MG PER DAY
     Route: 058
     Dates: start: 20080721, end: 20080811
  3. UNFRACTIONATED HEPARIN [Concomitant]
     Route: 065
     Dates: start: 20080710, end: 20080710

REACTIONS (5)
  - HAEMATOMA EVACUATION [None]
  - HAEMOGLOBIN DECREASED [None]
  - HAEMORRHAGE [None]
  - HEPARIN-INDUCED THROMBOCYTOPENIA [None]
  - THORACIC OPERATION [None]
